FAERS Safety Report 7275645-4 (Version None)
Quarter: 2011Q1

REPORT INFORMATION
  Report Type: 
  Country: None (occurrence: None)
  Receive Date: 20110204
  Receipt Date: 20110125
  Transmission Date: 20110831
  Serious: Yes (Hospitalization)
  Sender: FDA-Public Use
  Company Number: US-JNJFOC-20110105725

PATIENT
  Sex: Male
  Weight: 177.81 kg

DRUGS (4)
  1. STELARA [Suspect]
     Indication: PSORIASIS
     Route: 058
  2. TOPAMAX [Concomitant]
     Route: 048
  3. BUSPAR [Concomitant]
     Route: 048
  4. EFFEXOR [Concomitant]
     Route: 048

REACTIONS (9)
  - HOSPITALISATION [None]
  - DEHYDRATION [None]
  - ABNORMAL LOSS OF WEIGHT [None]
  - BLOOD PRESSURE DECREASED [None]
  - TESTICULAR ATROPHY [None]
  - MUSCLE DISORDER [None]
  - INJECTION SITE PAIN [None]
  - TESTICULAR PAIN [None]
  - HEADACHE [None]
